FAERS Safety Report 5401895-5 (Version None)
Quarter: 2007Q3

REPORT INFORMATION
  Report Type: 
  Country: None (occurrence: None)
  Receive Date: 20070731
  Receipt Date: 20070717
  Transmission Date: 20080115
  Serious: Yes (Other)
  Sender: FDA-Public Use
  Company Number: DE-SHR-DE-2007-026791

PATIENT
  Age: 21 Month
  Sex: Female
  Weight: 12 kg

DRUGS (2)
  1. SOTALOL HYDROCHLORIDE [Suspect]
     Dosage: 160 MG, 1 DOSE
     Route: 048
     Dates: start: 20070716, end: 20070716
  2. ENAHEXAL COMP. [Suspect]
     Dosage: 10/25 TAB(S), 1 DOSE
     Route: 048
     Dates: start: 20070716, end: 20070716

REACTIONS (2)
  - ACCIDENTAL EXPOSURE [None]
  - NO ADVERSE DRUG REACTION [None]
